FAERS Safety Report 13777200 (Version 1)
Quarter: 2017Q3

REPORT INFORMATION
  Report Type: Spontaneous
  Country: FR (occurrence: FR)
  Receive Date: 20170721
  Receipt Date: 20170721
  Transmission Date: 20171127
  Serious: Yes (Other)
  Sender: FDA-Public Use
  Company Number: FR-009507513-1707FRA004482

PATIENT

DRUGS (1)
  1. PEMBROLIZUMAB. [Suspect]
     Active Substance: PEMBROLIZUMAB
     Dosage: DOSE NOT REPORTED, Q3W(EVERY 3 WEEKS)
     Route: 042

REACTIONS (2)
  - Eosinophilia [Unknown]
  - Immune system disorder [Unknown]
